FAERS Safety Report 9500881 (Version 1)
Quarter: 2013Q1

REPORT INFORMATION
  Report Type: Spontaneous
  Country: US (occurrence: None)
  Receive Date: 20130109
  Receipt Date: 20130109
  Transmission Date: 20140127
  Serious: Yes (Other)
  Sender: FDA-Public Use
  Company Number: FK201201530

PATIENT
  Age: 59 Year
  Sex: Female
  Weight: 64.41 kg

DRUGS (6)
  1. PACLITAXEL [Suspect]
     Indication: OVARIAN CANCER
     Dosage: 133.6 MG, DAYS 1, 8, 15 + 28, INTRAVENOUS
     Dates: start: 20120521, end: 20120521
  2. SYNTHROID (LEVOTHYROXINE SODIUM) [Concomitant]
  3. ATENOLOL (ATENOLOL) [Concomitant]
  4. WARFARIN (WARFARIN) [Concomitant]
  5. LORAZEPAM (LORAZEPAM) [Concomitant]
  6. AMLODIPINE (AMLODIPINE) [Concomitant]

REACTIONS (5)
  - Hypersensitivity [None]
  - Blood pressure increased [None]
  - Chest pain [None]
  - Back pain [None]
  - Dyspnoea [None]
